FAERS Safety Report 6576169-X (Version None)
Quarter: 2010Q1

REPORT INFORMATION
  Report Type: 
  Country: None (occurrence: None)
  Receive Date: 20100209
  Receipt Date: 20100125
  Transmission Date: 20100710
  Serious: Yes (Hospitalization, Other)
  Sender: FDA-Public Use
  Company Number: PHHY2010GH06137

PATIENT
  Sex: Male
  Weight: 3.6 kg

DRUGS (2)
  1. METHERGINE [Suspect]
     Dosage: UNK
  2. VITAMIN K TAB [Suspect]

REACTIONS (4)
  - CONVULSION [None]
  - CYANOSIS [None]
  - DRUG TOXICITY [None]
  - WRONG DRUG ADMINISTERED [None]
